FAERS Safety Report 4865722-7 (Version None)
Quarter: 2005Q4

REPORT INFORMATION
  Report Type: 
  Country: None (occurrence: None)
  Receive Date: 20051220
  Receipt Date: 20051130
  Transmission Date: 20060501
  Serious: Yes (Hospitalization)
  Sender: FDA-Public Use
  Company Number: 220336

PATIENT
  Age: 27 Year
  Sex: Female
  Weight: 62 kg

DRUGS (3)
  1. MABTHERA(RITUXIMAB) CONC FOR SOLUTION FOR INFUSION [Suspect]
     Indication: RHEUMATOID ARTHRITIS
     Dosage: 1 G, INTRAVENOUS
     Route: 042
     Dates: start: 20040701, end: 20050103
  2. DICLOFENAC SODIUM [Concomitant]
  3. ACETAMINOPHEN [Concomitant]

REACTIONS (1)
  - APPENDICITIS [None]
